FAERS Safety Report 7241803-8 (Version None)
Quarter: 2011Q1

REPORT INFORMATION
  Report Type: 
  Country: None (occurrence: None)
  Receive Date: 20110124
  Receipt Date: 20110120
  Transmission Date: 20110831
  Serious: Yes (Death, Other)
  Sender: FDA-Public Use
  Company Number: JP-SANOFI-AVENTIS-2010SA075149

PATIENT
  Age: 76 Year
  Sex: Male
  Weight: 47 kg

DRUGS (25)
  1. DEXAMETHASONE SODIUM PHOSPHATE [Concomitant]
     Route: 041
     Dates: start: 20090722, end: 20090722
  2. AMARYL [Concomitant]
     Route: 048
  3. GRANISETRON HCL [Concomitant]
     Route: 041
     Dates: start: 20090819, end: 20090819
  4. WARFARIN [Concomitant]
     Route: 048
  5. DEXAMETHASONE SODIUM PHOSPHATE [Concomitant]
     Route: 041
     Dates: start: 20090819, end: 20090819
  6. LOXONIN [Concomitant]
     Route: 048
     Dates: start: 20090818
  7. MIGLITOL [Concomitant]
     Route: 048
  8. NU-LOTAN [Concomitant]
     Route: 048
  9. PARULEON [Concomitant]
     Route: 048
  10. MUCOSTA [Concomitant]
     Dates: start: 20090812
  11. TAXOTERE [Suspect]
     Route: 041
     Dates: start: 20090722, end: 20090722
  12. METFORMIN HCL [Concomitant]
     Route: 048
  13. ASPIRIN [Concomitant]
     Route: 048
  14. TAXOTERE [Suspect]
     Indication: NON-SMALL CELL LUNG CANCER STAGE III
     Route: 041
     Dates: start: 20090701, end: 20090701
  15. TAXOTERE [Suspect]
     Route: 041
     Dates: start: 20090819, end: 20090819
  16. MELBIN [Concomitant]
     Route: 048
     Dates: start: 20090812
  17. ITAVASTATIN [Concomitant]
     Route: 048
  18. PLAVIX [Concomitant]
     Route: 048
  19. BASEN [Concomitant]
     Dates: start: 20090812
  20. DEXAMETHASONE SODIUM PHOSPHATE [Concomitant]
     Route: 041
     Dates: start: 20090701, end: 20090819
  21. GRANISETRON HCL [Concomitant]
     Route: 041
     Dates: start: 20090701, end: 20090701
  22. GRANISETRON HCL [Concomitant]
     Route: 041
     Dates: start: 20090722, end: 20090722
  23. GASLON [Concomitant]
     Route: 048
  24. MEVALOTIN [Concomitant]
     Route: 048
     Dates: start: 20090812
  25. LASIX [Concomitant]
     Route: 048
     Dates: start: 20090815

REACTIONS (3)
  - INTERSTITIAL LUNG DISEASE [None]
  - RESPIRATORY FAILURE [None]
  - PNEUMONIA [None]
